FAERS Safety Report 7234102-1 (Version None)
Quarter: 2011Q1

REPORT INFORMATION
  Report Type: 
  Country: None (occurrence: None)
  Receive Date: 20110119
  Receipt Date: 20110105
  Transmission Date: 20110831
  Serious: Yes (Other)
  Sender: FDA-Public Use
  Company Number: DE-JNJFOC-20110101556

PATIENT
  Sex: Male

DRUGS (4)
  1. IBUPROFEN [Concomitant]
  2. SIMPONI [Suspect]
     Indication: RHEUMATOID ARTHRITIS
     Route: 058
  3. CORTISONE [Concomitant]
  4. ARAVA [Concomitant]

REACTIONS (5)
  - HEADACHE [None]
  - JOINT SWELLING [None]
  - INSOMNIA [None]
  - CARDIOVASCULAR DISORDER [None]
  - OEDEMA PERIPHERAL [None]
